FAERS Safety Report 7606911 (Version 2)
Quarter: 2014Q3

REPORT INFORMATION
  Report Type: Spontaneous
  Country: US (occurrence: None)
  Receive Date: 20100915
  Receipt Date: 20140725
  Transmission Date: 20150326
  Serious: Yes (Hospitalization, Other)
  Sender: FDA-Public Use
  Company Number: 2010S1005675

PATIENT
  Age: 66 Year
  Sex: Male
  Weight: 99 kg

DRUGS (3)
  1. PROCARDIA [Concomitant]
     Active Substance: NIFEDIPINE
  2. AVAPRO [Concomitant]
     Active Substance: IRBESARTAN
  3. PHOSPHO-SODA [Suspect]
     Active Substance: SODIUM PHOSPHATE, DIBASIC\SODIUM PHOSPHATE, MONOBASIC
     Indication: COLONOSCOPY
     Dosage: ;PO
     Route: 048
     Dates: start: 200808, end: 200808

REACTIONS (10)
  - Dysgeusia [None]
  - Renal failure acute [None]
  - Blood pressure inadequately controlled [None]
  - Malaise [None]
  - Decreased appetite [None]
  - Nausea [None]
  - Cough [None]
  - Renal failure chronic [None]
  - Dyspepsia [None]
  - Acute phosphate nephropathy [None]

NARRATIVE: CASE EVENT DATE: 20080903
